APPROVED DRUG PRODUCT: AVODART
Active Ingredient: DUTASTERIDE
Strength: 0.5MG
Dosage Form/Route: CAPSULE;ORAL
Application: N021319 | Product #001 | TE Code: AB
Applicant: WAYLIS THERAPEUTICS LLC
Approved: Nov 20, 2001 | RLD: Yes | RS: Yes | Type: RX